FAERS Safety Report 10276469 (Version 2)
Quarter: 2014Q3

REPORT INFORMATION
  Report Type: Spontaneous
  Country: DE (occurrence: DE)
  Receive Date: 20140703
  Receipt Date: 20140708
  Transmission Date: 20150326
  Serious: Yes (Death, Hospitalization, Other)
  Sender: FDA-Public Use
  Company Number: DE-GILEAD-2014-0107094

PATIENT
  Age: 53 Year
  Sex: Male

DRUGS (12)
  1. DACLATASVIR [Concomitant]
     Active Substance: DACLATASVIR
     Indication: HEPATITIS C
     Dosage: 60 MG, QD
  2. PANTOZOL [Concomitant]
     Active Substance: PANTOPRAZOLE SODIUM
     Dosage: 40 MG, TID
  3. KONAKION [Concomitant]
     Active Substance: PHYTONADIONE
     Dosage: 10 DROPLETS, QD
  4. BICANORM [Concomitant]
     Active Substance: SODIUM BICARBONATE
     Dosage: 1 G, TID
     Route: 048
  5. LEVEMIR [Concomitant]
     Active Substance: INSULIN DETEMIR
  6. NOVORAPID [Concomitant]
     Active Substance: INSULIN ASPART
  7. SOVALDI [Suspect]
     Active Substance: SOFOSBUVIR
     Indication: HEPATITIS C
     Dosage: 400 MG, QD (1 TABLET AT NOON)
     Route: 065
  8. BIFITERAL [Concomitant]
     Active Substance: LACTULOSE
     Indication: HEPATIC CIRRHOSIS
     Dosage: 20 ML, TID
  9. PALLADON [Concomitant]
     Active Substance: HYDROMORPHONE
     Dosage: 4 MG, BID
     Route: 048
  10. RIOPAN                             /00141701/ [Concomitant]
     Dosage: UNK, TID
     Route: 048
  11. FORMOTEROL [Concomitant]
     Active Substance: FORMOTEROL
     Indication: ASTHMA
     Dosage: 12UG, METERED DOSE INHALER
  12. HEPA MERZ [Concomitant]
     Indication: HEPATIC ENCEPHALOPATHY
     Dosage: 6000 MG, TID

REACTIONS (16)
  - Hypovolaemia [Fatal]
  - Multi-organ failure [Fatal]
  - Cardiovascular insufficiency [Unknown]
  - Shock haemorrhagic [Unknown]
  - Renal failure acute [Unknown]
  - Transfusion [Unknown]
  - Lactic acidosis [Unknown]
  - Acute hepatic failure [Unknown]
  - Haemoglobin abnormal [Unknown]
  - Metabolic acidosis [Unknown]
  - Drug therapy [Unknown]
  - Oesophageal varices haemorrhage [Unknown]
  - Oesophagogastroduodenoscopy [Unknown]
  - Renal failure [Unknown]
  - Haemorrhage [Fatal]
  - Respiratory failure [Unknown]

NARRATIVE: CASE EVENT DATE: 20140624
